FAERS Safety Report 7756839-8 (Version None)
Quarter: 2011Q3

REPORT INFORMATION
  Report Type: 
  Country: None (occurrence: None)
  Receive Date: 20110916
  Receipt Date: 20110913
  Transmission Date: 20111222
  Serious: Yes (Death)
  Sender: FDA-Public Use
  Company Number: DE-ROCHE-799339

PATIENT
  Sex: Female
  Weight: 156 kg

DRUGS (3)
  1. BEVACIZUMAB [Suspect]
     Dosage: FORM INFUSION
     Route: 042
     Dates: start: 20101026
  2. CAPECITABINE [Suspect]
     Dosage: DOSE REPORTED AS 2 X 2000 MG DAILY
     Route: 048
     Dates: start: 20101026, end: 20101105
  3. OXALIPLATIN [Suspect]
     Dosage: FREQUENCY:D1,D8. FORM:INFUSION
     Route: 042
     Dates: start: 20101026

REACTIONS (9)
  - INTERNATIONAL NORMALISED RATIO INCREASED [None]
  - DEATH [None]
  - COMA [None]
  - GENERAL PHYSICAL CONDITION ABNORMAL [None]
  - MULTI-ORGAN FAILURE [None]
  - SEPSIS [None]
  - BLOOD POTASSIUM INCREASED [None]
  - BLOOD SODIUM DECREASED [None]
  - HEPATIC ENCEPHALOPATHY [None]
